FAERS Safety Report 19012081 (Version 1)
Quarter: 2021Q1

REPORT INFORMATION
  Report Type: Spontaneous
  Country: TW (occurrence: TW)
  Receive Date: 20210316
  Receipt Date: 20210316
  Transmission Date: 20210420
  Serious: Yes (Hospitalization)
  Sender: FDA-Public Use
  Company Number: TW-STRIDES ARCOLAB LIMITED-2021SP003128

PATIENT
  Age: 63 Year
  Sex: Male

DRUGS (4)
  1. ACETAZOLAMIDE. [Interacting]
     Active Substance: ACETAZOLAMIDE
     Dosage: UNK
     Route: 065
  2. ASPIRIN [ACETYLSALICYLIC ACID] [Interacting]
     Active Substance: ASPIRIN
     Indication: PERIPHERAL ARTERIAL OCCLUSIVE DISEASE
  3. ACETAZOLAMIDE. [Suspect]
     Active Substance: ACETAZOLAMIDE
     Indication: GLAUCOMA
     Dosage: UNK
     Route: 065
  4. ASPIRIN [ACETYLSALICYLIC ACID] [Interacting]
     Active Substance: ASPIRIN
     Indication: CORONARY ARTERY DISEASE
     Dosage: UNK, DAILY
     Route: 065

REACTIONS (4)
  - Acidosis hyperchloraemic [Recovered/Resolved]
  - Hyperammonaemia [Recovered/Resolved]
  - Drug interaction [Unknown]
  - Drug clearance decreased [Unknown]
